FAERS Safety Report 4830718-8 (Version None)
Quarter: 2005Q4

REPORT INFORMATION
  Report Type: 
  Country: None (occurrence: None)
  Receive Date: 20051115
  Receipt Date: 20051102
  Transmission Date: 20060501
  Serious: Yes (Hospitalization)
  Sender: FDA-Public Use
  Company Number: 218260

PATIENT
  Age: 51 Year
  Sex: Male

DRUGS (5)
  1. RITUXAN [Suspect]
     Indication: IDIOPATHIC THROMBOCYTOPENIC PURPURA
     Dosage: 700 MG, 1 WEEK, INTRAVENOUS
     Route: 042
     Dates: start: 20020805, end: 20020909
  2. URSODIOL [Concomitant]
  3. LIVACT [Concomitant]
  4. GLYCYRON #2 (LICORICE, GLYCINE, CALCIUM CARBONATE, METHIONINE) [Concomitant]
  5. PREDNISONE [Concomitant]

REACTIONS (7)
  - HEPATIC FAILURE [None]
  - LIVER DISORDER [None]
  - MULTI-ORGAN FAILURE [None]
  - NOCARDIOSIS [None]
  - PNEUMONIA BACTERIAL [None]
  - PNEUMONIA FUNGAL [None]
  - RESPIRATORY DISORDER [None]
